FAERS Safety Report 25482726 (Version 1)
Quarter: 2025Q2

REPORT INFORMATION
  Report Type: Spontaneous
  Country: GB (occurrence: GB)
  Receive Date: 20250626
  Receipt Date: 20250626
  Transmission Date: 20250717
  Serious: Yes (Other)
  Sender: AUROBINDO
  Company Number: GB-MHRA-MED-202506151545037570-BLKVC

PATIENT
  Age: 65 Year
  Sex: Male
  Weight: 99 kg

DRUGS (1)
  1. AMLODIPINE [Suspect]
     Active Substance: AMLODIPINE BESYLATE
     Indication: Hypertension
     Route: 065
     Dates: start: 2020

REACTIONS (1)
  - Tendon disorder [Recovering/Resolving]

NARRATIVE: CASE EVENT DATE: 20250613
